FAERS Safety Report 9348395 (Version 2)
Quarter: 2013Q3

REPORT INFORMATION
  Report Type: Report from Study
  Country: CL (occurrence: CL)
  Receive Date: 20130614
  Receipt Date: 20130814
  Transmission Date: 20140515
  Serious: Yes (Hospitalization, Other)
  Sender: FDA-Public Use
  Company Number: CL-ROCHE-1236257

PATIENT
  Age: 40 Year
  Sex: Female
  Weight: 80 kg

DRUGS (1)
  1. ACTEMRA [Suspect]
     Indication: RHEUMATOID ARTHRITIS
     Route: 042
     Dates: start: 20120801

REACTIONS (7)
  - Neuritis [Recovering/Resolving]
  - Abortion spontaneous [Unknown]
  - Pharyngitis [Recovering/Resolving]
  - Laryngitis [Recovering/Resolving]
  - Sinusitis [Recovering/Resolving]
  - Bronchitis [Recovered/Resolved]
  - Exposure during pregnancy [Unknown]
